FAERS Safety Report 8539670-5 (Version None)
Quarter: 2012Q3

REPORT INFORMATION
  Report Type: 
  Country: None (occurrence: None)
  Receive Date: 20120726
  Receipt Date: 20110718
  Transmission Date: 20120928
  Serious: No
  Sender: FDA-Public Use
  Company Number: US-ASTRAZENECA-2009UW18577

PATIENT
  Age: 39 Year
  Sex: Female
  Weight: 104.3 kg

DRUGS (15)
  1. ZOLOFT [Concomitant]
     Indication: ANXIETY
     Dates: start: 20060914
  2. GEODON [Concomitant]
     Dates: start: 20080922
  3. TRICOR [Concomitant]
     Dates: start: 20080922
  4. SEROQUEL [Suspect]
     Indication: ANXIETY
     Route: 048
     Dates: start: 20050101, end: 20080101
  5. ZOLOFT [Concomitant]
     Indication: DEPRESSION
     Dates: start: 20060914
  6. XANAX [Concomitant]
     Indication: DEPRESSION
     Dates: start: 20060914
  7. CRESTOR [Concomitant]
     Dates: start: 20080922
  8. SEROQUEL [Suspect]
     Indication: DEPRESSION
     Route: 048
     Dates: start: 20050101, end: 20080101
  9. NAPROXEN [Concomitant]
     Dates: start: 20080922
  10. SEROQUEL [Suspect]
     Route: 048
     Dates: start: 20060914
  11. SEROQUEL [Suspect]
     Route: 048
     Dates: start: 20060914
  12. TRIHEXYPHENIDYL HCL [Concomitant]
  13. XANAX [Concomitant]
     Indication: ANXIETY
     Dates: start: 20060914
  14. DETROL LA [Concomitant]
     Indication: URINARY INCONTINENCE
     Dates: start: 20060914
  15. DARVOCET-N 50 [Concomitant]
     Dates: start: 20080922

REACTIONS (6)
  - TYPE 2 DIABETES MELLITUS [None]
  - BLOOD CHOLESTEROL INCREASED [None]
  - EATING DISORDER [None]
  - HYPERLIPIDAEMIA [None]
  - AMNESIA [None]
  - BACK PAIN [None]
